FAERS Safety Report 23840483 (Version 1)
Quarter: 2024Q2

REPORT INFORMATION
  Report Type: Report from Study
  Country: US (occurrence: US)
  Receive Date: 20240510
  Receipt Date: 20240510
  Transmission Date: 20240716
  Serious: No
  Sender: FDA-Public Use
  Company Number: US-ALXN-202405USA000367US

PATIENT
  Sex: Male
  Weight: 41.814 kg

DRUGS (1)
  1. ULTOMIRIS [Suspect]
     Active Substance: RAVULIZUMAB-CWVZ
     Indication: Haemolytic uraemic syndrome
     Dosage: 3000 MILLIGRAM, EVERY 12 WEEKS
     Route: 042
     Dates: start: 20210505

REACTIONS (2)
  - Back pain [Unknown]
  - Off label use [Unknown]
